FAERS Safety Report 17531052 (Version 1)
Quarter: 2020Q1

REPORT INFORMATION
  Report Type: Spontaneous
  Country: RU (occurrence: RU)
  Receive Date: 20200312
  Receipt Date: 20200312
  Transmission Date: 20200409
  Serious: Yes (Other)
  Sender: FDA-Public Use
  Company Number: RU-AMGEN-RUSSP2020038062

PATIENT
  Age: 27 Year
  Sex: Female

DRUGS (5)
  1. CORAXAN (IVABRADINE HYDROCHLORIDE) [Suspect]
     Active Substance: IVABRADINE HYDROCHLORIDE
     Indication: VENTRICULAR TACHYCARDIA
  2. WARFARIN [Concomitant]
     Active Substance: WARFARIN
     Indication: VENTRICULAR TACHYCARDIA
     Dosage: 5 MILLIGRAM, QD
     Route: 048
     Dates: start: 201905
  3. CONCOR [Concomitant]
     Active Substance: BISOPROLOL FUMARATE
     Indication: CARDIAC FAILURE CHRONIC
     Dosage: 3.75 MILLIGRAM, QD (2.5 MG IN THE MORNING AND 1.25 MG IN THE EVENING)
     Route: 048
     Dates: start: 201905
  4. CONCOR [Concomitant]
     Active Substance: BISOPROLOL FUMARATE
     Indication: VENTRICULAR TACHYCARDIA
  5. CORAXAN (IVABRADINE HYDROCHLORIDE) [Suspect]
     Active Substance: IVABRADINE HYDROCHLORIDE
     Indication: CARDIAC FAILURE CHRONIC
     Dosage: 2.5 MILLIGRAM, BID
     Route: 048
     Dates: start: 20200228

REACTIONS (4)
  - Ventricular extrasystoles [Not Recovered/Not Resolved]
  - Supraventricular extrasystoles [Not Recovered/Not Resolved]
  - Electrocardiogram QT prolonged [Not Recovered/Not Resolved]
  - Tachycardia [Not Recovered/Not Resolved]

NARRATIVE: CASE EVENT DATE: 20200228
